FAERS Safety Report 6504925-2 (Version None)
Quarter: 2009Q4

REPORT INFORMATION
  Report Type: 
  Country: None (occurrence: None)
  Receive Date: 20091218
  Receipt Date: 20091214
  Transmission Date: 20100525
  Serious: Yes (Hospitalization)
  Sender: FDA-Public Use
  Company Number: ES-ROCHE-674384

PATIENT
  Age: 76 Year
  Sex: Male

DRUGS (2)
  1. CLONAZEPAM [Suspect]
     Indication: DRUG USE FOR UNKNOWN INDICATION
     Route: 048
     Dates: start: 20090427, end: 20090501
  2. DEPRAX [Suspect]
     Indication: VASCULAR DEMENTIA
     Route: 048
     Dates: start: 20090427, end: 20090501

REACTIONS (2)
  - HEPATITIS [None]
  - HYPERBILIRUBINAEMIA [None]
